FAERS Safety Report 20614826 (Version 1)
Quarter: 2022Q1

REPORT INFORMATION
  Report Type: Spontaneous
  Country: US (occurrence: US)
  Receive Date: 20220321
  Receipt Date: 20220321
  Transmission Date: 20220424
  Serious: Yes (Hospitalization, Other)
  Sender: FDA-Public Use
  Company Number: US-APOTEX-2022AP004816

PATIENT
  Age: 43 Year
  Sex: Male
  Weight: 80 kg

DRUGS (3)
  1. ENOXAPARIN [Suspect]
     Active Substance: ENOXAPARIN
     Indication: Fibrin D dimer increased
     Dosage: 40 MILLIGRAM, QD
     Route: 058
  2. ENOXAPARIN [Suspect]
     Active Substance: ENOXAPARIN
     Indication: Anticoagulant therapy
     Dosage: 80 MILLIGRAM, BID ( 1 MG/KG)
     Route: 058
  3. ENOXAPARIN [Suspect]
     Active Substance: ENOXAPARIN
     Dosage: 40 MILLIGRAM, BID (0.5 MG/KG)
     Route: 058

REACTIONS (1)
  - Melaena [Unknown]
